FAERS Safety Report 8597794-0 (Version None)
Quarter: 2012Q3

REPORT INFORMATION
  Report Type: 
  Country: None (occurrence: None)
  Receive Date: 20120816
  Receipt Date: 20120813
  Transmission Date: 20120928
  Serious: Yes (Hospitalization, Other)
  Sender: FDA-Public Use
  Company Number: PHEH2012US015839

PATIENT
  Sex: Male

DRUGS (4)
  1. CLOZAPINE [Suspect]
     Dosage: 350 MG, UNK
  2. CLOZAPINE [Suspect]
     Dosage: 400 MG, UNK
     Dates: start: 20120201
  3. ZYPREXA [Concomitant]
  4. CLOZARIL [Suspect]
     Dosage: 400 MG, UNK
     Dates: end: 20120201

REACTIONS (4)
  - DEHYDRATION [None]
  - HEART RATE INCREASED [None]
  - DRUG LEVEL INCREASED [None]
  - BLOOD PRESSURE DIASTOLIC INCREASED [None]
